FAERS Safety Report 8224094-0 (Version None)
Quarter: 2012Q1

REPORT INFORMATION
  Report Type: 
  Country: None (occurrence: None)
  Receive Date: 20120307
  Receipt Date: 20110404
  Transmission Date: 20120608
  Serious: No
  Sender: FDA-Public Use
  Company Number: PHHY2011US27882

PATIENT
  Sex: Male

DRUGS (5)
  1. AFINITOR [Suspect]
     Indication: TUBEROUS SCLEROSIS
     Dosage: 40 MG, WEEKLY, ORAL
     Route: 048
     Dates: start: 20100501
  2. AFINITOR [Suspect]
     Indication: ASTROCYTOMA
     Dosage: 40 MG, WEEKLY, ORAL
     Route: 048
     Dates: start: 20100501
  3. FELBATOL [Concomitant]
  4. LAMICTAL [Concomitant]
  5. RISPERDAL [Concomitant]

REACTIONS (1)
  - INSOMNIA [None]
